FAERS Safety Report 4988361-6 (Version None)
Quarter: 2006Q2

REPORT INFORMATION
  Report Type: 
  Country: None (occurrence: None)
  Receive Date: 20060426
  Receipt Date: 20060413
  Transmission Date: 20061013
  Serious: No
  Sender: FDA-Public Use
  Company Number: TPA2006A00659

PATIENT
  Age: 69 Year
  Sex: Female
  Weight: 68.0396 kg

DRUGS (8)
  1. ROZEREM [Suspect]
     Indication: MIDDLE INSOMNIA
     Dosage: SEE IMAGE
     Route: 048
     Dates: start: 20060101, end: 20060201
  2. ROZEREM [Suspect]
     Indication: MIDDLE INSOMNIA
     Dosage: SEE IMAGE
     Route: 048
     Dates: start: 20060201
  3. ARMOUR THYROID (THYROID) (2 GRAM) [Concomitant]
  4. BIESTROGEN (ESTROGENS) (1.5 MILLIGRAM) [Concomitant]
  5. PROGESTERONE LOZENGE (PROGESTERONE) (100 MILLIGRAM) [Concomitant]
  6. TESTOSTERONE CREAM (TESTOSTERONE) [Concomitant]
  7. PREGNENOLONE (PREGNENOLONE) (100 MILLIGRAM) [Concomitant]
  8. DHEA-S (PRASTERONE) (25 MILLIGRAM) [Concomitant]

REACTIONS (2)
  - FEELING ABNORMAL [None]
  - NAUSEA [None]
